FAERS Safety Report 4586370-2 (Version None)
Quarter: 2005Q1

REPORT INFORMATION
  Report Type: 
  Country: None (occurrence: None)
  Receive Date: 20050125
  Receipt Date: 20041027
  Transmission Date: 20050727
  Serious: No
  Sender: FDA-Public Use
  Company Number: USA040977490

PATIENT
  Age: 77 Year
  Sex: Female

DRUGS (2)
  1. FORTEO [Suspect]
     Indication: OSTEOPOROSIS
     Dosage: 20 UG/1 DAY
     Dates: start: 20040505, end: 20040914
  2. PREVACID [Concomitant]

REACTIONS (2)
  - RASH GENERALISED [None]
  - TYPE III IMMUNE COMPLEX MEDIATED REACTION [None]
